FAERS Safety Report 17982310 (Version 2)
Quarter: 2020Q3

REPORT INFORMATION
  Report Type: Spontaneous
  Country: ES (occurrence: ES)
  Receive Date: 20200706
  Receipt Date: 20200710
  Transmission Date: 20201103
  Serious: Yes (Life-Threatening)
  Sender: FDA-Public Use
  Company Number: NVSC2020ES188633

PATIENT
  Age: 64 Year
  Sex: Male

DRUGS (10)
  1. ADVAGRAF [Interacting]
     Active Substance: TACROLIMUS
     Indication: HEART TRANSPLANT
     Dosage: 2 MG, Q24H
     Route: 048
     Dates: start: 20170419
  2. PICATO [Interacting]
     Active Substance: INGENOL MEBUTATE
     Indication: ACTINIC KERATOSIS
     Dosage: UNK
     Route: 061
     Dates: start: 20181231, end: 20190102
  3. PARACETAMOL [Concomitant]
     Active Substance: ACETAMINOPHEN
     Indication: PRODUCT USED FOR UNKNOWN INDICATION
     Dosage: 1000 MG, Q8H
     Route: 048
     Dates: start: 20170419
  4. FOLIC ACID. [Concomitant]
     Active Substance: FOLIC ACID
     Indication: HEART TRANSPLANT
     Dosage: 5 MG, Q24H
     Route: 048
     Dates: start: 20170419
  5. PRAVASTATINA [Concomitant]
     Active Substance: PRAVASTATIN SODIUM
     Indication: DYSLIPIDAEMIA
     Dosage: 20 MG, Q24H
     Route: 048
     Dates: start: 20170419
  6. PREDNISONA [Interacting]
     Active Substance: PREDNISONE
     Indication: HEART TRANSPLANT
     Dosage: 2.5 MG, Q24H
     Route: 048
     Dates: start: 20170419
  7. OMEPRAZOL [Concomitant]
     Active Substance: OMEPRAZOLE
     Indication: PRODUCT USED FOR UNKNOWN INDICATION
     Dosage: 20 MG, Q24H
     Route: 048
     Dates: start: 20170419
  8. MICOFENOLATO DE MOFETILO [Suspect]
     Active Substance: MYCOPHENOLATE MOFETIL
     Indication: HEART TRANSPLANT
     Dosage: 500 MG, Q12H
     Route: 048
     Dates: start: 20170419
  9. PICATO [Interacting]
     Active Substance: INGENOL MEBUTATE
     Dosage: UNK
     Route: 061
     Dates: start: 20190403, end: 20190405
  10. MUPIROCINA [Interacting]
     Active Substance: MUPIROCIN CALCIUM
     Indication: ACTINIC KERATOSIS
     Dosage: UNK
     Route: 061
     Dates: start: 20181231

REACTIONS (1)
  - Squamous cell carcinoma of skin [Not Recovered/Not Resolved]

NARRATIVE: CASE EVENT DATE: 201906
